FAERS Safety Report 9380298 (Version 1)
Quarter: 2013Q3

REPORT INFORMATION
  Report Type: Spontaneous
  Country: US (occurrence: US)
  Receive Date: 20130702
  Receipt Date: 20130702
  Transmission Date: 20140515
  Serious: Yes (Disabling)
  Sender: FDA-Public Use
  Company Number: US-TEVA-416170USA

PATIENT
  Age: 51 Year
  Sex: Female
  Weight: 98.97 kg

DRUGS (14)
  1. BACLOFEN [Suspect]
     Dosage: 60 MILLIGRAM DAILY;
  2. LYRICA [Suspect]
     Indication: FIBROMYALGIA
     Dosage: 225 MILLIGRAM DAILY;
     Dates: start: 2011, end: 201306
  3. BACLOFEN [Concomitant]
     Indication: MUSCLE RELAXANT THERAPY
     Dosage: AS NEEDED
  4. HYDROCHLOROTHIAZIDE [Concomitant]
     Indication: FLUID RETENTION
     Dosage: 12.5 MILLIGRAM DAILY;
  5. OMEPRAZOLE [Concomitant]
     Indication: GASTROOESOPHAGEAL REFLUX DISEASE
     Dosage: 20 MILLIGRAM DAILY;
  6. LOVASTATIN [Concomitant]
     Dosage: 20 MILLIGRAM DAILY;
  7. POLYCARBOPHIL CALCIUM [Concomitant]
     Dosage: 1250 MILLIGRAM DAILY;
  8. SYNTHROID [Concomitant]
     Indication: HYPOTHYROIDISM
     Dosage: 25 MICROGRAM DAILY;
  9. TRAZODONE [Concomitant]
     Indication: DEPRESSION
     Dosage: 150 MILLIGRAM DAILY;
  10. PROZAC [Concomitant]
     Indication: DEPRESSION
     Dosage: 40 MILLIGRAM DAILY;
  11. HYDROCODONE W/ACETAMINOPHEN [Concomitant]
     Indication: PAIN
     Dosage: 10/325 MG; AS NEEDED
  12. ROSUVASTATIN CALCIUM [Concomitant]
     Dosage: 10 MILLIGRAM DAILY;
  13. MELOXICAM [Concomitant]
     Dosage: 7.5 MILLIGRAM DAILY;
  14. XANAX [Concomitant]
     Indication: ANXIETY
     Dosage: AS NEEDED

REACTIONS (5)
  - Rheumatoid arthritis [Unknown]
  - Migraine [Unknown]
  - Somnolence [Unknown]
  - Drug dose omission [Unknown]
  - Pain [Not Recovered/Not Resolved]
